FAERS Safety Report 8175724-3 (Version None)
Quarter: 2012Q1

REPORT INFORMATION
  Report Type: 
  Country: None (occurrence: None)
  Receive Date: 20120301
  Receipt Date: 20120223
  Transmission Date: 20120608
  Serious: Yes (Other)
  Sender: FDA-Public Use
  Company Number: US-AMGEN-USASP2011014896

PATIENT
  Age: 47 Year
  Sex: Female
  Weight: 77.551 kg

DRUGS (2)
  1. BONIVA [Suspect]
     Dosage: UNK
  2. PROLIA [Suspect]
     Indication: OSTEOPOROSIS
     Dosage: 60 MG, UNK
     Dates: start: 20101201

REACTIONS (6)
  - OESOPHAGEAL ULCER [None]
  - INFLAMMATION [None]
  - INFECTION [None]
  - NAIL OPERATION [None]
  - PNEUMONIA [None]
  - POST PROCEDURAL INFECTION [None]
